FAERS Safety Report 21377937 (Version 4)
Quarter: 2023Q1

REPORT INFORMATION
  Report Type: Report from Study
  Country: CH (occurrence: CH)
  Receive Date: 20220926
  Receipt Date: 20230105
  Transmission Date: 20230418
  Serious: Yes (Hospitalization)
  Sender: FDA-Public Use
  Company Number: CH-ABBVIE-22K-151-4509574-00

PATIENT
  Age: 57 Year
  Sex: Female

DRUGS (6)
  1. CARBIDOPA\LEVODOPA [Suspect]
     Active Substance: CARBIDOPA\LEVODOPA
     Indication: Parkinson^s disease
     Dosage: MD:3.7 ML ?16H THERAPY
     Route: 050
     Dates: start: 20220808, end: 20220817
  2. CARBIDOPA\LEVODOPA [Suspect]
     Active Substance: CARBIDOPA\LEVODOPA
     Dosage: MD: 4.0 ML, CRD: 1.5 ML/H, CRN: 0 ML/H, ED: 0 ML?16H THERAPY
     Route: 050
     Dates: start: 20220818, end: 20220824
  3. CARBIDOPA\LEVODOPA [Suspect]
     Active Substance: CARBIDOPA\LEVODOPA
     Dosage: MD: 4.0 ML, CRD: 1.6 ML/H, CRN: 0 ML/H, ED: 0.5 ML
     Dates: start: 20220824, end: 20221024
  4. CARBIDOPA\LEVODOPA [Suspect]
     Active Substance: CARBIDOPA\LEVODOPA
     Dosage: MD: 4.0 ML, CRD: 1.9 ML/H, CRN: 0 ML/H, ED: 0.5 ML
     Route: 050
     Dates: start: 20221227
  5. CARBIDOPA\LEVODOPA [Suspect]
     Active Substance: CARBIDOPA\LEVODOPA
     Dosage: MD: 4.0 ML, CRD: 1.7 ML/H, CRN: 0 ML/H, ED: 0.5 ML?DRUG END DATE WAS 2022
     Route: 050
     Dates: start: 20221024, end: 2022
  6. CARBIDOPA\LEVODOPA [Suspect]
     Active Substance: CARBIDOPA\LEVODOPA
     Dosage: MD: 4.0 ML, CRD: 1.8 ML/H, CRN: 0 ML/H, ED: 0.5 ML
     Route: 050
     Dates: start: 2022, end: 20221227

REACTIONS (7)
  - Freezing phenomenon [Recovered/Resolved]
  - Fall [Not Recovered/Not Resolved]
  - Mobility decreased [Unknown]
  - Femoral neck fracture [Recovered/Resolved]
  - Gait disturbance [Unknown]
  - Device issue [Unknown]
  - Asthenia [Not Recovered/Not Resolved]

NARRATIVE: CASE EVENT DATE: 20220917
